FAERS Safety Report 9206317 (Version 1)
Quarter: 2013Q1

REPORT INFORMATION
  Report Type: Spontaneous
  Country: US (occurrence: None)
  Receive Date: 20120718
  Receipt Date: 20120718
  Transmission Date: 20140127
  Serious: Yes (Hospitalization, Other)
  Sender: FDA-Public Use
  Company Number: 163-50794-11112565

PATIENT
  Age: 72 Year
  Sex: Male

DRUGS (13)
  1. VIDAZA [Suspect]
     Indication: MYELODYSPLASTIC SYNDROME
     Dosage: DAYS 1-7 Q 28 DAYS
     Dates: start: 20100208, end: 20100707
  2. TYLENOL (PARACETAMOL) (UNKNOWN) [Concomitant]
  3. METFORMIN (METFORMIN) (UNKNOWN) [Concomitant]
  4. PRAVACHOL (PRAVASTATIN) [Concomitant]
  5. GLUCOTROL (GLIPIZIDE) (UNKNOWN) [Concomitant]
  6. COMPAZINE (PROCHLORPERAZINE EDISYLATE) (UNKNOWN) [Concomitant]
  7. ONDANSETRON HCL (ONDANSETRON HYDROCHLORIDE) (TABLETS) [Concomitant]
  8. ASPIR-81 (ACETYLSALICYLIC ACID) (UNKNOWN) [Concomitant]
  9. AUGMENTIN (CLAVULIN) (UNKNOWN) [Concomitant]
  10. FLUID (I.V. SOLUTION) (UNKNOWN) [Concomitant]
  11. CIPROFLOXACIN (CIPROFLOXACIN) (UNKNOWN) [Concomitant]
  12. ANTIBIOTICS (ANTIBIOTICS) [Concomitant]
  13. ANTIEMETICS (ANTIEMETICS AND ANTINAUSEANTS) [Concomitant]

REACTIONS (4)
  - Bone marrow failure [None]
  - Neutropenia [None]
  - Febrile neutropenia [None]
  - Injection site rash [None]
